FAERS Safety Report 24740040 (Version 3)
Quarter: 2025Q1

REPORT INFORMATION
  Report Type: Report from Study
  Country: CN (occurrence: CN)
  Receive Date: 20241216
  Receipt Date: 20250228
  Transmission Date: 20250409
  Serious: Yes (Hospitalization)
  Sender: ABBVIE
  Company Number: CN-ABBVIE-6049176

PATIENT
  Age: 51 Year
  Sex: Female
  Weight: 72 kg

DRUGS (3)
  1. MIRVETUXIMAB SORAVTANSINE [Suspect]
     Active Substance: MIRVETUXIMAB SORAVTANSINE
     Indication: Ovarian cancer
     Dosage: MOST RECENT DOSE WAS ON 13 NOV 2024
     Route: 042
     Dates: start: 20240924
  2. Bicyclol Tablets [Concomitant]
     Indication: Aspartate aminotransferase increased
     Route: 048
     Dates: start: 20241015
  3. INSULIN NOS [Concomitant]
     Active Substance: INSULIN NOS
     Indication: Diabetes mellitus
     Route: 041
     Dates: start: 202407

REACTIONS (2)
  - Sepsis [Recovering/Resolving]
  - Pneumonia [Recovering/Resolving]

NARRATIVE: CASE EVENT DATE: 20241103
